FAERS Safety Report 4879727-3 (Version None)
Quarter: 2006Q1

REPORT INFORMATION
  Report Type: 
  Country: None (occurrence: None)
  Receive Date: 20060113
  Receipt Date: 20060103
  Transmission Date: 20060701
  Serious: Yes (Hospitalization)
  Sender: FDA-Public Use
  Company Number: 2006CG00008

PATIENT
  Age: 48 Year
  Sex: Male

DRUGS (10)
  1. XYLOCAINE VISCOUS [Suspect]
     Route: 002
     Dates: start: 20030818
  2. DURAGESIC-100 [Suspect]
     Route: 062
     Dates: start: 20030818
  3. MOPRAL [Concomitant]
  4. CISPLATIN [Concomitant]
     Indication: SQUAMOUS CELL CARCINOMA
     Dates: start: 20030728, end: 20030819
  5. FLUOROURACIL [Concomitant]
     Indication: SQUAMOUS CELL CARCINOMA
     Dates: start: 20030728, end: 20030819
  6. RADIOTHERAPY [Concomitant]
     Indication: SQUAMOUS CELL CARCINOMA
     Dates: start: 20030728, end: 20030919
  7. XANAX [Concomitant]
  8. ACETAMINOPHEN [Concomitant]
  9. SOLU-MEDROL [Concomitant]
  10. TRIFLUCAN 100 [Concomitant]

REACTIONS (1)
  - THROMBOCYTOPENIA [None]
